FAERS Safety Report 18044791 (Version 4)
Quarter: 2020Q4

REPORT INFORMATION
  Report Type: Spontaneous
  Country: US (occurrence: US)
  Receive Date: 20200720
  Receipt Date: 20201103
  Transmission Date: 20210113
  Serious: Yes (Other)
  Sender: FDA-Public Use
  Company Number: US-BAYER-2020-139662

PATIENT
  Age: 33 Year
  Sex: Male

DRUGS (5)
  1. KOVALTRY [Suspect]
     Active Substance: ANTIHEMOPHILIC FACTOR, HUMAN RECOMBINANT
     Indication: FACTOR VIII DEFICIENCY
     Dosage: 3000 U, QOD
     Route: 042
     Dates: start: 201905
  2. KOVALTRY [Suspect]
     Active Substance: ANTIHEMOPHILIC FACTOR, HUMAN RECOMBINANT
     Indication: FACTOR VIII DEFICIENCY
     Dosage: 3000 U, QD AS NEEDED FOR BLEEDS AS DIRECTED
     Route: 042
     Dates: start: 201905
  3. KOVALTRY [Suspect]
     Active Substance: ANTIHEMOPHILIC FACTOR, HUMAN RECOMBINANT
     Indication: FACTOR VIII DEFICIENCY
     Dosage: 3000 U, QOD
     Route: 042
     Dates: start: 201905
  4. KOVALTRY [Suspect]
     Active Substance: ANTIHEMOPHILIC FACTOR, HUMAN RECOMBINANT
     Indication: FACTOR VIII DEFICIENCY
     Dosage: 4 DF, ONCE, TREATMENT OF BLEEDS R ELBOW AND R FOOT
     Route: 042
  5. KOVALTRY [Suspect]
     Active Substance: ANTIHEMOPHILIC FACTOR, HUMAN RECOMBINANT
     Indication: FACTOR VIII DEFICIENCY
     Dosage: 3000 U, QD AS NEEDED FOR BLEEDS AS DIRECTED
     Route: 042
     Dates: start: 201905

REACTIONS (3)
  - Haemarthrosis [Recovered/Resolved]
  - Haemorrhage [None]
  - Haemarthrosis [Recovering/Resolving]

NARRATIVE: CASE EVENT DATE: 202007
